FAERS Safety Report 14870775 (Version 1)
Quarter: 2018Q2

REPORT INFORMATION
  Report Type: Report from Study
  Country: CA (occurrence: CA)
  Receive Date: 20180509
  Receipt Date: 20180509
  Transmission Date: 20180711
  Serious: Yes (Hospitalization)
  Sender: FDA-Public Use
  Company Number: CA-SA-2018SA118330

PATIENT
  Age: 31 Year
  Sex: Male

DRUGS (1)
  1. LEMTRADA [Suspect]
     Active Substance: ALEMTUZUMAB
     Route: 041
     Dates: start: 201704

REACTIONS (3)
  - Muscular weakness [Unknown]
  - Nuclear magnetic resonance imaging [Unknown]
  - Progressive multifocal leukoencephalopathy [Unknown]
